FAERS Safety Report 12715006 (Version 1)
Quarter: 2016Q3

REPORT INFORMATION
  Report Type: Spontaneous
  Country: US (occurrence: US)
  Receive Date: 20160905
  Receipt Date: 20160905
  Transmission Date: 20161109
  Serious: No
  Sender: FDA-Public Use
  Company Number: US-TEVA-675108USA

PATIENT
  Sex: Male
  Weight: 72.64 kg

DRUGS (5)
  1. NUVIGIL [Suspect]
     Active Substance: ARMODAFINIL
     Indication: BIPOLAR DISORDER
     Dosage: 150 TO 250 IN SMALL DOSES
     Dates: start: 2008
  2. NUVIGIL [Suspect]
     Active Substance: ARMODAFINIL
     Indication: MANIA
  3. CAFFEINE. [Concomitant]
     Active Substance: CAFFEINE
  4. GABAPENTIN. [Concomitant]
     Active Substance: GABAPENTIN
  5. CLONAZEPAM. [Concomitant]
     Active Substance: CLONAZEPAM

REACTIONS (3)
  - Therapeutic response unexpected [Unknown]
  - Product use issue [Unknown]
  - Inappropriate schedule of drug administration [Unknown]

NARRATIVE: CASE EVENT DATE: 2008
